FAERS Safety Report 21876936 (Version 1)
Quarter: 2023Q1

REPORT INFORMATION
  Report Type: Spontaneous
  Country: US (occurrence: US)
  Receive Date: 20230118
  Receipt Date: 20230118
  Transmission Date: 20230418
  Serious: Yes (Other)
  Sender: FDA-Public Use
  Company Number: US-CORIUM, INC.-2023COR000002

PATIENT

DRUGS (1)
  1. AZSTARYS [Suspect]
     Active Substance: DEXMETHYLPHENIDATE HYDROCHLORIDE\SERDEXMETHYLPHENIDATE CHLORIDE
     Indication: Product used for unknown indication
     Dosage: 26.1 MG/5.2 MG
     Route: 048
     Dates: start: 202212

REACTIONS (6)
  - Facial paralysis [Unknown]
  - Hypoaesthesia oral [Unknown]
  - Drooling [Unknown]
  - Dyskinesia [Unknown]
  - Muscle twitching [Unknown]
  - Headache [Unknown]

NARRATIVE: CASE EVENT DATE: 20221201
